FAERS Safety Report 7257530-7 (Version None)
Quarter: 2011Q1

REPORT INFORMATION
  Report Type: 
  Country: None (occurrence: None)
  Receive Date: 20110129
  Receipt Date: 20100604
  Transmission Date: 20110831
  Serious: No
  Sender: FDA-Public Use
  Company Number: US-ABBOTT-10P-163-0649100-00

PATIENT
  Age: 61 Year
  Sex: Female

DRUGS (11)
  1. HUMIRA [Suspect]
     Indication: CROHN'S DISEASE
     Dates: start: 20091101
  2. FISH OIL [Concomitant]
     Indication: BLOOD CHOLESTEROL
  3. ZOLOFT [Concomitant]
     Indication: DEPRESSION
     Route: 048
  4. LUMIGAN [Concomitant]
     Indication: GLAUCOMA
     Dosage: AT NIGHT
  5. VIT D [Concomitant]
     Indication: PRODUCT USED FOR UNKNOWN INDICATION
  6. BONIVA [Concomitant]
     Indication: PRODUCT USED FOR UNKNOWN INDICATION
  7. LIPITOR [Concomitant]
     Indication: BLOOD CHOLESTEROL INCREASED
     Route: 048
  8. CITRACAL [Concomitant]
     Indication: BLOOD CALCIUM
  9. EXFORGE [Concomitant]
     Indication: HYPERTENSION
     Dosage: 5/160MG
     Route: 048
  10. MULTI-VITAMIN [Concomitant]
     Indication: PRODUCT USED FOR UNKNOWN INDICATION
  11. COMBIGAN [Concomitant]
     Indication: GLAUCOMA
     Dosage: 0.2/0.5%

REACTIONS (1)
  - OESOPHAGEAL PAIN [None]
